FAERS Safety Report 13619567 (Version 1)
Quarter: 2017Q2

REPORT INFORMATION
  Report Type: Spontaneous
  Country: US (occurrence: US)
  Receive Date: 20170606
  Receipt Date: 20170606
  Transmission Date: 20170830
  Serious: Yes (Hospitalization)
  Sender: FDA-Public Use
  Company Number: None

PATIENT
  Age: 82 Year
  Sex: Male

DRUGS (10)
  1. LEVOFLOXACIN. [Concomitant]
     Active Substance: LEVOFLOXACIN
  2. TRAMADOL. [Concomitant]
     Active Substance: TRAMADOL
  3. PANTOPRAZOLE [Concomitant]
     Active Substance: PANTOPRAZOLE
  4. CYANOCOBALAMIN. [Concomitant]
     Active Substance: CYANOCOBALAMIN
  5. ELIQUIS [Concomitant]
     Active Substance: APIXABAN
  6. GABAPENTIN. [Concomitant]
     Active Substance: GABAPENTIN
  7. ZYTIGA [Suspect]
     Active Substance: ABIRATERONE ACETATE
     Indication: PROSTATE CANCER
     Route: 048
     Dates: start: 20160825
  8. METOPROLOL. [Concomitant]
     Active Substance: METOPROLOL
  9. PREDNISONE. [Concomitant]
     Active Substance: PREDNISONE
  10. CIPRO [Concomitant]
     Active Substance: CIPROFLOXACIN HYDROCHLORIDE

REACTIONS (2)
  - Cystitis [None]
  - Drug dose omission [None]

NARRATIVE: CASE EVENT DATE: 201705
